FAERS Safety Report 11140005 (Version 1)
Quarter: 2015Q2

REPORT INFORMATION
  Report Type: Spontaneous
  Country: US (occurrence: US)
  Receive Date: 20150527
  Receipt Date: 20150527
  Transmission Date: 20150821
  Serious: No
  Sender: FDA-Public Use
  Company Number: US-ENDO PHARMACEUTICALS INC.-2015-000264

PATIENT
  Age: 11 Year
  Sex: Male
  Weight: 45.85 kg

DRUGS (2)
  1. ALBUTEROL MDI [Concomitant]
     Indication: PRODUCT USED FOR UNKNOWN INDICATION
  2. SUPPRELIN LA [Suspect]
     Active Substance: HISTRELIN ACETATE
     Indication: PRODUCT USED FOR UNKNOWN INDICATION
     Route: 058
     Dates: start: 201309, end: 20150318

REACTIONS (4)
  - Aggression [Unknown]
  - Mood swings [Unknown]
  - Incorrect drug administration duration [Recovered/Resolved]
  - Weight increased [Unknown]

NARRATIVE: CASE EVENT DATE: 201409
